FAERS Safety Report 8949116 (Version 1)
Quarter: 2012Q4

REPORT INFORMATION
  Report Type: 
  Country: US (occurrence: US)
  Receive Date: 20121206
  Receipt Date: 20121206
  Transmission Date: 20130627
  Serious: Yes (Death, Other)
  Sender: FDA-Public Use
  Company Number: US-CELGENEUS-163-21880-12120255

PATIENT
  Age: 68 None
  Sex: Female

DRUGS (1)
  1. REVLIMID [Suspect]
     Indication: AMYLOIDOSIS
     Dosage: 15 Milligram
     Route: 048
     Dates: start: 201209, end: 2012

REACTIONS (2)
  - Sepsis [Fatal]
  - Cardiac arrest [Unknown]
